FAERS Safety Report 7030388-7 (Version None)
Quarter: 2010Q4

REPORT INFORMATION
  Report Type: 
  Country: None (occurrence: None)
  Receive Date: 20101006
  Receipt Date: 20100806
  Transmission Date: 20110411
  Serious: Yes (Disabling, Other)
  Sender: FDA-Public Use
  Company Number: GB-SANOFI-AVENTIS-2010SA059309

PATIENT
  Age: 59 Year
  Sex: Female
  Weight: 60 kg

DRUGS (6)
  1. DOCETAXEL [Suspect]
     Indication: BREAST CANCER
     Route: 042
     Dates: start: 20090915, end: 20091201
  2. TRASTUZUMAB [Suspect]
     Indication: BREAST CANCER
     Route: 042
     Dates: start: 20090915
  3. TRASTUZUMAB [Suspect]
     Route: 042
  4. DEXAMETHASONE [Concomitant]
     Indication: CHEMOTHERAPY
  5. LETROZOLE [Concomitant]
     Route: 048
  6. METOCLOPRAMIDE [Concomitant]
     Indication: CHEMOTHERAPY

REACTIONS (7)
  - ASTHENIA [None]
  - DYSPHONIA [None]
  - MALAISE [None]
  - MOTOR NEURONE DISEASE [None]
  - MUSCLE ATROPHY [None]
  - MUSCULAR WEAKNESS [None]
  - PERIPHERAL MOTOR NEUROPATHY [None]
